FAERS Safety Report 6138605-2 (Version None)
Quarter: 2009Q1

REPORT INFORMATION
  Report Type: 
  Country: None (occurrence: None)
  Receive Date: 20090327
  Receipt Date: 20090311
  Transmission Date: 20090719
  Serious: Yes (Hospitalization)
  Sender: FDA-Public Use
  Company Number: 2009S1004255

PATIENT
  Age: 49 Year
  Sex: Male

DRUGS (5)
  1. AZATHIOPRINE [Suspect]
     Indication: COLITIS ULCERATIVE
     Dosage: 2 MG/KG;DAILY
     Dates: start: 20050501
  2. PREDNISONE TAB [Concomitant]
  3. GENTAMICIN [Concomitant]
  4. AMOXICILLIN CLAVULANIC ACID (SPEKTRAMOX /02043401/) [Concomitant]
  5. MESALAMINE [Concomitant]

REACTIONS (1)
  - ACUTE FEBRILE NEUTROPHILIC DERMATOSIS [None]
